FAERS Safety Report 23597606 (Version 1)
Quarter: 2024Q1

REPORT INFORMATION
  Report Type: Spontaneous
  Country: US (occurrence: None)
  Receive Date: 20240305
  Receipt Date: 20240305
  Transmission Date: 20240410
  Serious: Yes (Other)
  Sender: FDA-Public Use
  Company Number: None

PATIENT
  Age: 26 Year
  Sex: Female
  Weight: 62.1 kg

DRUGS (9)
  1. WEGOVY [Suspect]
     Active Substance: SEMAGLUTIDE
     Indication: Polycystic ovaries
     Dates: start: 20230124, end: 20230925
  2. WEGOVY [Suspect]
     Active Substance: SEMAGLUTIDE
     Indication: Weight control
  3. FAMOTIDINE [Concomitant]
     Active Substance: FAMOTIDINE
  4. nortryptiline [Concomitant]
  5. UNSPECIFIED INGREDIENT [Concomitant]
     Active Substance: UNSPECIFIED INGREDIENT
  6. HYDROXYZINE [Concomitant]
     Active Substance: HYDROXYZINE HYDROCHLORIDE
  7. MELATONIN [Concomitant]
     Active Substance: MELATONIN
  8. VITAMIN B12 [Concomitant]
     Active Substance: CYANOCOBALAMIN
  9. PROBIOTICS NOS [Concomitant]
     Active Substance: PROBIOTICS NOS

REACTIONS (5)
  - Gastritis [None]
  - Gastrooesophageal reflux disease [None]
  - Chest pain [None]
  - Vomiting [None]
  - Injury [None]

NARRATIVE: CASE EVENT DATE: 20230924
